FAERS Safety Report 4646343-8 (Version None)
Quarter: 2005Q2

REPORT INFORMATION
  Report Type: 
  Country: None (occurrence: None)
  Receive Date: 20050425
  Receipt Date: 20050408
  Transmission Date: 20051028
  Serious: Yes (Other)
  Sender: FDA-Public Use
  Company Number: KII-2005-0016026

PATIENT
  Age: 69 Year
  Sex: Male

DRUGS (6)
  1. MORPHINE SULFATE (SIMILAR TO NDA 19-516)(MORPHINE SUULFATE) OTHER [Suspect]
     Indication: PAIN
     Dosage: SEE TEXT, ORAL
     Route: 048
  2. BENZODIAZEPINE DERIVATIVES [Suspect]
     Dosage: SEE TEXT, ORAL
     Route: 048
  3. OTHER ANALGESICS AND ANTIPYRETICS [Concomitant]
  4. COUMADIN [Concomitant]
  5. PREDNISONE [Concomitant]
  6. SERUMLIPIDREDUCING AGENTS [Concomitant]

REACTIONS (3)
  - COMA [None]
  - INTENTIONAL MISUSE [None]
  - SOMNOLENCE [None]
